FAERS Safety Report 12934253 (Version 1)
Quarter: 2016Q4

REPORT INFORMATION
  Report Type: Report from Study
  Country: US (occurrence: US)
  Receive Date: 20161111
  Receipt Date: 20161111
  Transmission Date: 20170207
  Serious: Yes (Other)
  Sender: FDA-Public Use
  Company Number: US-MALLINCKRODT-T201605626

PATIENT
  Age: 58 Year
  Sex: Female

DRUGS (2)
  1. REPOSITORY CORTICOTROPIN INJECTION [Suspect]
     Active Substance: CORTICOTROPIN
     Dosage: UNK
     Route: 065
     Dates: start: 201610
  2. REPOSITORY CORTICOTROPIN INJECTION [Suspect]
     Active Substance: CORTICOTROPIN
     Indication: SARCOIDOSIS
     Dosage: 40U/.5ML EVERY OTHER DAY
     Route: 058
     Dates: start: 20160816

REACTIONS (4)
  - Sarcoidosis [Unknown]
  - Weight fluctuation [Unknown]
  - Heat exhaustion [Unknown]
  - Face oedema [Unknown]

NARRATIVE: CASE EVENT DATE: 201610
